FAERS Safety Report 4833879-X (Version None)
Quarter: 2005Q4

REPORT INFORMATION
  Report Type: 
  Country: None (occurrence: None)
  Receive Date: 20051118
  Receipt Date: 20051107
  Transmission Date: 20060501
  Serious: Yes (Death)
  Sender: FDA-Public Use
  Company Number: 2005-BP-19404RO

PATIENT
  Age: 20 Month
  Sex: Male

DRUGS (1)
  1. METHADONE HCL [Suspect]

REACTIONS (7)
  - BRAIN HERNIATION [None]
  - DRUG SCREEN POSITIVE [None]
  - GAZE PALSY [None]
  - HYPOXIC ENCEPHALOPATHY [None]
  - LOSS OF CONSCIOUSNESS [None]
  - MIOSIS [None]
  - RESPIRATORY RATE DECREASED [None]
